FAERS Safety Report 8886035 (Version 2)
Quarter: 2012Q4

REPORT INFORMATION
  Report Type: 
  Country: US (occurrence: US)
  Receive Date: 20121105
  Receipt Date: 20121203
  Transmission Date: 20130627
  Serious: Yes (Other)
  Sender: FDA-Public Use
  Company Number: US-AMGEN-USASP2012064010

PATIENT
  Age: 48 Year
  Sex: Female
  Weight: 87.98 kg

DRUGS (9)
  1. ENBREL [Suspect]
     Indication: PSORIATIC ARTHROPATHY
     Dosage: 50 mg, qwk
     Route: 058
     Dates: start: 20111216, end: 20120629
  2. LORAZEPAM [Concomitant]
     Dosage: 1 mg, qd, 5 times/week
     Route: 048
  3. NEURONTIN [Concomitant]
     Dosage: 600mg I po qam,3 po qh8
     Route: 048
  4. KLONOPIN [Concomitant]
     Dosage: 1 mg, qhs
     Route: 048
  5. TRIAMTEREEN/HYDROCHLOORTHIAZIDE CF [Concomitant]
     Dosage: 37.5/25mg, once/twice a month
  6. CLOBETASOL [Concomitant]
     Dosage: 0.05 %, prn
  7. MORPHINE [Concomitant]
     Dosage: 40 mg, bid
     Route: 048
  8. CALCIUM CITRATE [Concomitant]
     Dosage: w/D-3 I po qbs
     Route: 048
  9. OXYCODON [Concomitant]
     Dosage: 10 mg, qd, 1-6
     Route: 048

REACTIONS (20)
  - Depression [Unknown]
  - Skin cancer [Unknown]
  - Arthralgia [Not Recovered/Not Resolved]
  - Pain in extremity [Not Recovered/Not Resolved]
  - Joint swelling [Not Recovered/Not Resolved]
  - Oedema peripheral [Not Recovered/Not Resolved]
  - Weight bearing difficulty [Not Recovered/Not Resolved]
  - Vision blurred [Recovered/Resolved]
  - Insomnia [Unknown]
  - Anxiety [Unknown]
  - Neuropathy peripheral [Unknown]
  - Hypersensitivity [Unknown]
  - Joint destruction [Unknown]
  - Musculoskeletal stiffness [Unknown]
  - Psoriatic arthropathy [Unknown]
  - Animal bite [Unknown]
  - Conjunctivitis [Unknown]
  - Radiculopathy [Unknown]
  - Psoriasis [Unknown]
  - Optic neuritis [Unknown]
